FAERS Safety Report 14823652 (Version 1)
Quarter: 2018Q2

REPORT INFORMATION
  Report Type: Spontaneous
  Country: US (occurrence: US)
  Receive Date: 20180428
  Receipt Date: 20180428
  Transmission Date: 20180711
  Serious: Yes (Hospitalization)
  Sender: FDA-Public Use
  Company Number: US-VIFOR (INTERNATIONAL) INC.-VIT-2018-03884

PATIENT
  Age: 68 Year
  Sex: Male

DRUGS (16)
  1. CARDURA [Concomitant]
     Active Substance: DOXAZOSIN MESYLATE
  2. CARTIA XT [Concomitant]
     Active Substance: DILTIAZEM HYDROCHLORIDE
  3. LOVAZA [Concomitant]
     Active Substance: OMEGA-3-ACID ETHYL ESTERS
  4. VELTASSA [Suspect]
     Active Substance: PATIROMER
     Indication: HYPERKALAEMIA
     Route: 048
     Dates: start: 20160608
  5. NOVOLOG MIX 70/30 [Concomitant]
     Active Substance: INSULIN ASPART
  6. TRADJENTA [Concomitant]
     Active Substance: LINAGLIPTIN
  7. ERGOCALCIFEROL. [Concomitant]
     Active Substance: ERGOCALCIFEROL
  8. KIONEX [Concomitant]
     Active Substance: SODIUM POLYSTYRENE SULFONATE
  9. LASIX [Concomitant]
     Active Substance: FUROSEMIDE
  10. PRANDIN [Concomitant]
     Active Substance: REPAGLINIDE
  11. COENZYME Q10 [Concomitant]
     Active Substance: UBIDECARENONE
  12. GLIMEPIRIDE. [Concomitant]
     Active Substance: GLIMEPIRIDE
  13. GRALISE [Concomitant]
     Active Substance: GABAPENTIN
  14. NIASPAN [Concomitant]
     Active Substance: NIACIN
  15. SLOW-MAG [Concomitant]
     Active Substance: MAGNESIUM CHLORIDE
  16. LISINOPRIL. [Concomitant]
     Active Substance: LISINOPRIL

REACTIONS (1)
  - Sepsis [Unknown]

NARRATIVE: CASE EVENT DATE: 201801
